FAERS Safety Report 9536369 (Version 1)
Quarter: 2013Q2

REPORT INFORMATION
  Report Type: Spontaneous
  Country: US (occurrence: None)
  Receive Date: 20130517
  Receipt Date: 20130517
  Transmission Date: 20140414
  Serious: Yes (Other)
  Sender: FDA-Public Use
  Company Number: 1000041962

PATIENT
  Age: 60 Year
  Sex: Female

DRUGS (8)
  1. VIIBRYD (VILAZODONE HYDROCHLORIDE) (10 MILLIGRAM, TABLETS) [Suspect]
     Indication: BIPOLAR I DISORDER
     Route: 048
     Dates: start: 20130117
  2. TRAZODONE (TRAZODONE) (TRAZODONE) [Concomitant]
  3. PRAVASTATIN (PRAVASTATIN) (PRAVASTATIN) [Concomitant]
  4. MIRTAZAPINE (MIRTAZAPINE) (MIRTAZAPINE) [Concomitant]
  5. KLONOPIN [Concomitant]
  6. LISINOPRIL (LISINOPRIL) (LISINOPRIL) [Concomitant]
  7. LAMOTRIGINE (LAMOTRIGINE) (LAMOTRIGINE) [Concomitant]
  8. DILTIAZEM (DILTIAZEM HYDROCHLORIDE) (DILTIAEM HYDROCHLORIDE) [Concomitant]

REACTIONS (2)
  - Diarrhoea [None]
  - Abdominal pain lower [None]
